FAERS Safety Report 6579813-6 (Version None)
Quarter: 2010Q1

REPORT INFORMATION
  Report Type: 
  Country: None (occurrence: None)
  Receive Date: 20100212
  Receipt Date: 20100208
  Transmission Date: 20100710
  Serious: Yes (Hospitalization)
  Sender: FDA-Public Use
  Company Number: FR-ROCHE-684369

PATIENT
  Sex: Male

DRUGS (9)
  1. CLONAZEPAM [Suspect]
     Dosage: STRENGTH:2.5 MG/ML
     Route: 048
     Dates: start: 20091013, end: 20091110
  2. TRIVASTAL [Concomitant]
     Dosage: 1 DOSE
     Route: 048
  3. PREVISCAN [Concomitant]
     Indication: ATRIAL FIBRILLATION
     Route: 048
  4. COVERSYL [Concomitant]
     Route: 048
  5. AMIODARONE HCL [Concomitant]
     Route: 048
  6. KARDEGIC [Concomitant]
     Dosage: FORM:SACHET
     Route: 048
  7. TAHOR [Concomitant]
     Route: 048
  8. KREDEX [Concomitant]
     Route: 048
  9. TRINITRINE [Concomitant]
     Route: 062

REACTIONS (1)
  - ANAEMIA HAEMOLYTIC AUTOIMMUNE [None]
